FAERS Safety Report 8576727-7 (Version None)
Quarter: 2012Q3

REPORT INFORMATION
  Report Type: 
  Country: None (occurrence: None)
  Receive Date: 20120807
  Receipt Date: 20120731
  Transmission Date: 20120928
  Serious: Yes (Hospitalization)
  Sender: FDA-Public Use
  Company Number: US-GLAXOSMITHKLINE-B0820931A

PATIENT
  Age: 45 Year
  Sex: Male

DRUGS (7)
  1. LAMOTRIGINE [Suspect]
     Indication: EPILEPSY
     Dosage: 200MG TWICE PER DAY
     Route: 065
  2. DIVALPROEX SODIUM [Suspect]
     Indication: EPILEPSY
     Dosage: 750MG TWICE PER DAY
     Route: 065
  3. TOPIRAMATE [Concomitant]
     Route: 065
  4. VITAMIN B1 TAB [Concomitant]
     Route: 065
  5. VITAMIN D [Concomitant]
     Route: 065
  6. LORAZEPAM [Concomitant]
     Route: 065
  7. RISPERIDONE [Concomitant]
     Route: 065

REACTIONS (8)
  - TOXICITY TO VARIOUS AGENTS [None]
  - DRUG INTERACTION [None]
  - DYSARTHRIA [None]
  - CONDITION AGGRAVATED [None]
  - MENTAL IMPAIRMENT [None]
  - ATAXIA [None]
  - AGGRESSION [None]
  - HALLUCINATION [None]
